FAERS Safety Report 5697194-7 (Version None)
Quarter: 2008Q2

REPORT INFORMATION
  Report Type: 
  Country: None (occurrence: None)
  Receive Date: 20080408
  Receipt Date: 20070625
  Transmission Date: 20081010
  Serious: No
  Sender: FDA-Public Use
  Company Number: US-BAYER-US-2007-023701

PATIENT
  Age: 43 Year
  Sex: Female
  Weight: 91 kg

DRUGS (5)
  1. YASMIN [Suspect]
     Indication: ORAL CONTRACEPTION
     Route: 048
     Dates: start: 20070101
  2. ANTIDEPRESSANTS [Concomitant]
     Indication: DEPRESSION
     Route: 048
     Dates: start: 20040101
  3. PRILOSEC [Concomitant]
     Indication: GASTROOESOPHAGEAL REFLUX DISEASE
  4. FLEXERIL [Concomitant]
     Indication: FIBROMYALGIA
  5. VITAMIN CAP [Concomitant]

REACTIONS (1)
  - VAGINAL HAEMORRHAGE [None]
